FAERS Safety Report 18364951 (Version 1)
Quarter: 2020Q4

REPORT INFORMATION
  Report Type: Spontaneous
  Country: PT (occurrence: PT)
  Receive Date: 20201009
  Receipt Date: 20201009
  Transmission Date: 20210114
  Serious: Yes (Hospitalization)
  Sender: FDA-Public Use
  Company Number: PT-MYLANLABS-2020M1085139

PATIENT
  Sex: Female

DRUGS (17)
  1. CLONAZEPAM. [Suspect]
     Active Substance: CLONAZEPAM
     Indication: EPILEPSY
     Dosage: 4 MILLIGRAM, QD
     Route: 065
     Dates: start: 2012
  2. LEVETIRACETAM. [Suspect]
     Active Substance: LEVETIRACETAM
     Dosage: 4000 MILLIGRAM, QD
     Route: 065
     Dates: start: 2009
  3. RISPERIDONE. [Suspect]
     Active Substance: RISPERIDONE
     Indication: PSYCHOTIC DISORDER
     Dosage: 6 MILLIGRAM, QD
     Route: 048
     Dates: start: 2012
  4. LAMOTRIGINE. [Suspect]
     Active Substance: LAMOTRIGINE
     Indication: EPILEPSY
     Dosage: LAMOTRIGINE 100MG 1/2+0+1+0
     Route: 065
  5. CARBAMAZEPINE. [Suspect]
     Active Substance: CARBAMAZEPINE
     Dosage: 400 MILLIGRAM, BID
     Route: 065
  6. LAMOTRIGINE. [Suspect]
     Active Substance: LAMOTRIGINE
     Dosage: TITRATION OF LAMOTRIGINE TO 200 MG/DAY
     Route: 065
  7. CARBAMAZEPINE. [Suspect]
     Active Substance: CARBAMAZEPINE
     Dosage: 1800 MILLIGRAM, QD
     Route: 065
     Dates: start: 2011
  8. CLOBAZAM. [Suspect]
     Active Substance: CLOBAZAM
     Indication: EPILEPSY
     Dosage: 20 MILLIGRAM, QD
     Route: 065
  9. CLOBAZAM. [Suspect]
     Active Substance: CLOBAZAM
     Dosage: 20 MILLIGRAM, QD
     Route: 065
  10. CLONAZEPAM. [Suspect]
     Active Substance: CLONAZEPAM
     Dosage: 2 MILLIGRAM(1/4+1/4+0+1)
     Route: 065
  11. ZOTEPINE [Suspect]
     Active Substance: ZOTEPINE
     Indication: PSYCHOTIC DISORDER
     Dosage: UP TO 300 MG/DAY
     Route: 065
  12. RISPERIDONE. [Suspect]
     Active Substance: RISPERIDONE
     Dosage: DOSE: 50 MG/ML
     Route: 030
  13. LEVETIRACETAM. [Suspect]
     Active Substance: LEVETIRACETAM
     Indication: EPILEPSY
     Dosage: 1000 MILLIGRAM, QD
     Route: 065
     Dates: start: 2007
  14. CARBAMAZEPINE. [Suspect]
     Active Substance: CARBAMAZEPINE
     Dosage: 1200 MILLIGRAM, QD
     Route: 065
     Dates: start: 2014
  15. CLOBAZAM. [Suspect]
     Active Substance: CLOBAZAM
     Dosage: 40 MILLIGRAM, QD
     Route: 065
     Dates: start: 2010
  16. CARBAMAZEPINE. [Suspect]
     Active Substance: CARBAMAZEPINE
     Indication: EPILEPSY
     Dosage: 1200 MILLIGRAM, QD
     Route: 065
  17. RISPERIDONE. [Suspect]
     Active Substance: RISPERIDONE
     Indication: PSYCHOTIC DISORDER
     Dosage: 37.5 MG/ML FORTNIGHTLY
     Route: 030

REACTIONS (3)
  - Drug ineffective [Unknown]
  - Psychotic disorder [Recovered/Resolved]
  - Disability [Unknown]

NARRATIVE: CASE EVENT DATE: 2012
